FAERS Safety Report 10893244 (Version 2)
Quarter: 2015Q2

REPORT INFORMATION
  Report Type: Spontaneous
  Country: DE (occurrence: DE)
  Receive Date: 20150306
  Receipt Date: 20150504
  Transmission Date: 20150821
  Serious: Yes (Life-Threatening, Other)
  Sender: FDA-Public Use
  Company Number: DE-009507513-1503DEU001865

PATIENT
  Age: 62 Year
  Sex: Male

DRUGS (3)
  1. MK-0000 [Suspect]
     Active Substance: INVESTIGATIONAL PRODUCT
     Dosage: UNK
  2. SIMVASTATIN HEXAL [Suspect]
     Active Substance: SIMVASTATIN
     Indication: CARDIOVASCULAR EVENT PROPHYLAXIS
  3. SIMVASTATIN HEXAL [Suspect]
     Active Substance: SIMVASTATIN
     Indication: HYPERTENSION
     Dosage: 40 MG, 1 DAY
     Route: 048

REACTIONS (3)
  - Acute kidney injury [Unknown]
  - Paresis [Unknown]
  - Rhabdomyolysis [Recovering/Resolving]

NARRATIVE: CASE EVENT DATE: 20150210
